FAERS Safety Report 7513929-2 (Version None)
Quarter: 2011Q2

REPORT INFORMATION
  Report Type: 
  Country: None (occurrence: None)
  Receive Date: 20110531
  Receipt Date: 20110119
  Transmission Date: 20111010
  Serious: Yes (Disabling)
  Sender: FDA-Public Use
  Company Number: PHHY2011IT45305

PATIENT
  Sex: Male

DRUGS (4)
  1. CARDICOR [Concomitant]
  2. LORAZEPAM [Suspect]
     Indication: INSOMNIA
     Dosage: 2.5 MG, UNK
     Dates: start: 20110113, end: 20110113
  3. COUMADIN [Concomitant]
  4. PANTOPRAZOLE SODIUM [Concomitant]

REACTIONS (4)
  - DYSARTHRIA [None]
  - BRADYKINESIA [None]
  - BRADYPHRENIA [None]
  - CONFUSIONAL STATE [None]
